FAERS Safety Report 4440773-5 (Version None)
Quarter: 2004Q3

REPORT INFORMATION
  Report Type: 
  Country: None (occurrence: None)
  Receive Date: 20040728
  Receipt Date: 20040331
  Transmission Date: 20050211
  Serious: No
  Sender: FDA-Public Use
  Company Number: USA040363675

PATIENT
  Age: 9 Year
  Sex: Male
  Weight: 28 kg

DRUGS (4)
  1. STRATTERA [Suspect]
     Indication: ATTENTION DEFICIT/HYPERACTIVITY DISORDER
     Dosage: 25 MG DAY
     Dates: start: 20031016
  2. RISPERDAL [Concomitant]
  3. ADDERALL 20 [Concomitant]
  4. ZOLOFT [Concomitant]

REACTIONS (2)
  - CONTUSION [None]
  - WEIGHT DECREASED [None]
